FAERS Safety Report 10010465 (Version 1)
Quarter: 2014Q1

REPORT INFORMATION
  Report Type: Spontaneous
  Country: US (occurrence: US)
  Receive Date: 20140314
  Receipt Date: 20140314
  Transmission Date: 20141002
  Serious: No
  Sender: FDA-Public Use
  Company Number: US-BIOGENIDEC-2014BI023226

PATIENT
  Age: 51 Year
  Sex: Female

DRUGS (4)
  1. AVONEX [Suspect]
     Indication: MULTIPLE SCLEROSIS
     Route: 030
     Dates: start: 20140213
  2. ALPRAZOLAM ER [Concomitant]
  3. HYDROCORTISONE [Concomitant]
  4. PROZAC [Concomitant]

REACTIONS (1)
  - Injection site bruising [Unknown]
